FAERS Safety Report 17253779 (Version 4)
Quarter: 2020Q2

REPORT INFORMATION
  Report Type: Spontaneous
  Country: FR (occurrence: FR)
  Receive Date: 20200109
  Receipt Date: 20200518
  Transmission Date: 20200713
  Serious: Yes (Life-Threatening, Hospitalization, Other)
  Sender: FDA-Public Use
  Company Number: FR-JNJFOC-20200109227

PATIENT
  Age: 55 Year
  Sex: Male
  Weight: 71 kg

DRUGS (14)
  1. ATORVASTATIN [Concomitant]
     Active Substance: ATORVASTATIN
     Indication: PRODUCT USED FOR UNKNOWN INDICATION
  2. DOLIPRANE [Concomitant]
     Active Substance: ACETAMINOPHEN
     Indication: PAIN
  3. LANSOPRAZOLE. [Concomitant]
     Active Substance: LANSOPRAZOLE
  4. TREMFYA [Suspect]
     Active Substance: GUSELKUMAB
  5. TREMFYA [Suspect]
     Active Substance: GUSELKUMAB
     Indication: PSORIASIS
     Route: 058
     Dates: start: 201903, end: 201909
  6. TRIMEBUTINE [Concomitant]
     Active Substance: TRIMEBUTINE
     Indication: PAIN
  7. UVEDOSE [Concomitant]
     Active Substance: CHOLECALCIFEROL
     Indication: PRODUCT USED FOR UNKNOWN INDICATION
     Dosage: 100000 IU/ML;  1 AMPOULE/MONTH
  8. CRESTOR [Concomitant]
     Active Substance: ROSUVASTATIN CALCIUM
  9. BISOPROLOL [Concomitant]
     Active Substance: BISOPROLOL
  10. BRILIQUE [Concomitant]
     Active Substance: TICAGRELOR
     Indication: PRODUCT USED FOR UNKNOWN INDICATION
  11. PHOSPHALUGEL [Concomitant]
     Active Substance: ALUMINUM PHOSPHATE
     Indication: PAIN
  12. ACETYLSALICYLIC ACID [Concomitant]
     Active Substance: ASPIRIN
  13. KARDEGIC [Concomitant]
     Active Substance: ASPIRIN DL-LYSINE
  14. ESOMEPRAZOLE. [Concomitant]
     Active Substance: ESOMEPRAZOLE MAGNESIUM
     Indication: PRODUCT USED FOR UNKNOWN INDICATION

REACTIONS (9)
  - Stent placement [Unknown]
  - Chest pain [Unknown]
  - Fatigue [Unknown]
  - Dyspnoea exertional [Unknown]
  - Angina unstable [Recovered/Resolved]
  - Incorrect dosage administered [Unknown]
  - Product prescribing error [Unknown]
  - Acute coronary syndrome [Unknown]
  - Off label use [Unknown]

NARRATIVE: CASE EVENT DATE: 201903
